FAERS Safety Report 15234004 (Version 1)
Quarter: 2018Q3

REPORT INFORMATION
  Report Type: Spontaneous
  Country: US (occurrence: US)
  Receive Date: 20180802
  Receipt Date: 20180802
  Transmission Date: 20181010
  Serious: No
  Sender: FDA-Public Use
  Company Number: US-009507513-1808USA000504

PATIENT
  Age: 37 Year
  Sex: Female

DRUGS (1)
  1. SIVEXTRO [Suspect]
     Active Substance: TEDIZOLID PHOSPHATE
     Indication: ABSCESS LIMB
     Dosage: 1 TABLET (200MG) DAILY
     Route: 048

REACTIONS (2)
  - Hyperhidrosis [Unknown]
  - Rash [Unknown]
